FAERS Safety Report 4457477-5 (Version None)
Quarter: 2004Q3

REPORT INFORMATION
  Report Type: 
  Country: None (occurrence: None)
  Receive Date: 20040921
  Receipt Date: 20040910
  Transmission Date: 20050211
  Serious: Yes (Disabling)
  Sender: FDA-Public Use
  Company Number: A0525250A

PATIENT
  Age: 19 Year
  Sex: Female

DRUGS (3)
  1. WELLBUTRIN XL [Suspect]
     Indication: DEPRESSION
     Dosage: PER DAY/ORAL
     Route: 048
     Dates: start: 20040809
  2. ARIPIPRAZOLE [Concomitant]
  3. OXCARBAZEPINE [Concomitant]

REACTIONS (3)
  - CRYING [None]
  - IMPAIRED DRIVING ABILITY [None]
  - VISION BLURRED [None]
